FAERS Safety Report 17250959 (Version 1)
Quarter: 2020Q1

REPORT INFORMATION
  Report Type: Spontaneous
  Country: CA (occurrence: CA)
  Receive Date: 20200109
  Receipt Date: 20200109
  Transmission Date: 20200409
  Serious: Yes (Other)
  Sender: FDA-Public Use
  Company Number: CA-ACCORD-168635

PATIENT
  Sex: Male

DRUGS (7)
  1. APO-ATENOL [Concomitant]
     Active Substance: ATENOLOL
  2. CODEINE PHOSPHATE/PARACETAMOL [Concomitant]
     Active Substance: ACETAMINOPHEN\CODEINE PHOSPHATE
  3. COLCHICINE. [Concomitant]
     Active Substance: COLCHICINE
  4. PROCTOSEDYL [Concomitant]
     Active Substance: DIBUCAINE HYDROCHLORIDE\HYDROCORTISONE
  5. ADALAT CC [Concomitant]
     Active Substance: NIFEDIPINE
  6. ALLOPURINOL. [Concomitant]
     Active Substance: ALLOPURINOL
  7. RAMIPRIL. [Suspect]
     Active Substance: RAMIPRIL
     Indication: HYPERTENSION
     Dosage: 1 EVERY 1 DAYS
     Route: 048

REACTIONS (2)
  - Product substitution issue [Unknown]
  - Headache [Recovered/Resolved]
